FAERS Safety Report 20057700 (Version 3)
Quarter: 2022Q3

REPORT INFORMATION
  Report Type: Spontaneous
  Country: US (occurrence: US)
  Receive Date: 20211111
  Receipt Date: 20220721
  Transmission Date: 20221027
  Serious: No
  Sender: FDA-Public Use
  Company Number: US-LUPIN PHARMACEUTICALS INC.-2021-21977

PATIENT
  Sex: Female

DRUGS (2)
  1. ALBUTEROL SULFATE [Suspect]
     Active Substance: ALBUTEROL SULFATE
     Indication: Chronic obstructive pulmonary disease
     Dosage: UNK, PRN (EVERY 6 HOURS AS NEEDED)
     Dates: start: 20211022
  2. ALBUTEROL SULFATE [Suspect]
     Active Substance: ALBUTEROL SULFATE
     Indication: Seasonal allergy
     Dosage: UNK, PRN (EVERY 6 HOURS AS NEEDED) (PREVIOUS TWO INHALERS)

REACTIONS (3)
  - Off label use [Unknown]
  - Product preparation error [Unknown]
  - Device delivery system issue [Unknown]
